FAERS Safety Report 4374259-3 (Version None)
Quarter: 2004Q2

REPORT INFORMATION
  Report Type: 
  Country: None (occurrence: None)
  Receive Date: 20040602
  Receipt Date: 20040224
  Transmission Date: 20050107
  Serious: No
  Sender: FDA-Public Use
  Company Number: 200412146BWH

PATIENT
  Age: 72 Year
  Sex: Male
  Weight: 58.9676 kg

DRUGS (6)
  1. LEVITRA [Suspect]
     Indication: ERECTILE DYSFUNCTION
     Dosage: 20 MG, TOTAL DAILY, ORAL
     Route: 048
     Dates: start: 20040125
  2. DEPAKOTE [Concomitant]
  3. ZOLOFT [Concomitant]
  4. ALBUTEROL [Concomitant]
  5. ATROVENT [Concomitant]
  6. PULMICORT [Concomitant]

REACTIONS (1)
  - EJACULATION FAILURE [None]
